FAERS Safety Report 11830525 (Version 3)
Quarter: 2015Q4

REPORT INFORMATION
  Report Type: Spontaneous
  Country: US (occurrence: US)
  Receive Date: 20151214
  Receipt Date: 20151215
  Transmission Date: 20160305
  Serious: No
  Sender: FDA-Public Use
  Company Number: US-JNJFOC-20151107225

PATIENT

DRUGS (2)
  1. REMICADE [Suspect]
     Active Substance: INFLIXIMAB
     Indication: METASTATIC MALIGNANT MELANOMA
     Route: 042
     Dates: start: 201104, end: 201307
  2. REMICADE [Suspect]
     Active Substance: INFLIXIMAB
     Indication: DIARRHOEA
     Route: 042
     Dates: start: 201104, end: 201307

REACTIONS (4)
  - Infusion related reaction [Unknown]
  - Product use issue [Unknown]
  - Drug ineffective [Unknown]
  - Off label use [Unknown]

NARRATIVE: CASE EVENT DATE: 201104
